FAERS Safety Report 8199819-3 (Version None)
Quarter: 2012Q1

REPORT INFORMATION
  Report Type: 
  Country: None (occurrence: None)
  Receive Date: 20120312
  Receipt Date: 20120229
  Transmission Date: 20120608
  Serious: Yes (Hospitalization)
  Sender: FDA-Public Use
  Company Number: US-BIOGENIDEC-2012BI007444

PATIENT
  Age: 31 Year
  Sex: Female

DRUGS (4)
  1. AVONEX [Suspect]
     Route: 030
  2. AVONEX [Suspect]
     Indication: MULTIPLE SCLEROSIS
     Route: 030
     Dates: start: 20010405, end: 20010801
  3. AVONEX [Suspect]
     Route: 030
     Dates: start: 20030101, end: 20030901
  4. STEROIDS [Concomitant]
     Route: 042

REACTIONS (1)
  - OSTEONECROSIS [None]
